FAERS Safety Report 12300305 (Version 4)
Quarter: 2016Q2

REPORT INFORMATION
  Report Type: Spontaneous
  Country: US (occurrence: US)
  Receive Date: 20160425
  Receipt Date: 20160614
  Transmission Date: 20160815
  Serious: Yes (Other)
  Sender: FDA-Public Use
  Company Number: US-BAUSCH-BL-2016-009446

PATIENT
  Age: 63 Year
  Sex: Female

DRUGS (1)
  1. XENAZINE [Suspect]
     Active Substance: TETRABENAZINE
     Indication: PARKINSON^S DISEASE
     Route: 048

REACTIONS (5)
  - Eye pruritus [Unknown]
  - Off label use [Not Recovered/Not Resolved]
  - Eye operation [Unknown]
  - Dizziness [Unknown]
  - Vision blurred [Unknown]

NARRATIVE: CASE EVENT DATE: 201604
